FAERS Safety Report 6566223-0 (Version None)
Quarter: 2010Q1

REPORT INFORMATION
  Report Type: 
  Country: None (occurrence: None)
  Receive Date: 20100202
  Receipt Date: 20100120
  Transmission Date: 20100710
  Serious: Yes (Other)
  Sender: FDA-Public Use
  Company Number: BR-PFIZER INC-2010007737

PATIENT
  Sex: Female

DRUGS (2)
  1. FRONTAL [Suspect]
     Indication: AGORAPHOBIA
     Dosage: 0.062 MG, 1X/DAY
     Route: 048
     Dates: start: 20090101
  2. LEXAPRO [Concomitant]
     Dosage: UNK

REACTIONS (2)
  - DEPRESSION [None]
  - NEGATIVE THOUGHTS [None]
